FAERS Safety Report 18369687 (Version 1)
Quarter: 2020Q4

REPORT INFORMATION
  Report Type: Spontaneous
  Country: US (occurrence: US)
  Receive Date: 20201012
  Receipt Date: 20201012
  Transmission Date: 20210114
  Serious: No
  Sender: FDA-Public Use
  Company Number: US-APOTEX-2020AP013605

PATIENT
  Sex: Female

DRUGS (1)
  1. MIRTAZAPINE TABLETS [Suspect]
     Active Substance: MIRTAZAPINE
     Indication: PRODUCT USED FOR UNKNOWN INDICATION
     Dosage: 1 DOSAGE FORM, BID
     Route: 065
     Dates: start: 2020, end: 2020

REACTIONS (3)
  - Alopecia [Unknown]
  - Night sweats [Unknown]
  - Asthenia [Unknown]

NARRATIVE: CASE EVENT DATE: 2020
